FAERS Safety Report 4346039-6 (Version None)
Quarter: 2004Q2

REPORT INFORMATION
  Report Type: 
  Country: None (occurrence: None)
  Receive Date: 20040426
  Receipt Date: 20040419
  Transmission Date: 20050107
  Serious: Yes (Hospitalization)
  Sender: FDA-Public Use
  Company Number: FR-BRISTOL-MYERS SQUIBB COMPANY-12567780

PATIENT
  Age: 68 Year
  Sex: Female

DRUGS (4)
  1. GLUCOPHAGE [Suspect]
     Indication: DIABETES MELLITUS NON-INSULIN-DEPENDENT
     Route: 048
  2. NEORAL [Suspect]
     Indication: CHRONIC LYMPHOCYTIC LEUKAEMIA
     Route: 048
     Dates: start: 20020315
  3. TRILEPTAL [Suspect]
     Indication: TRIGEMINAL NEURALGIA
     Route: 048
     Dates: start: 19990630
  4. LEXOMIL [Suspect]
     Route: 048

REACTIONS (1)
  - LUNG INFILTRATION [None]
